FAERS Safety Report 13384129 (Version 1)
Quarter: 2017Q1

REPORT INFORMATION
  Report Type: Spontaneous
  Country: CH (occurrence: CH)
  Receive Date: 20170329
  Receipt Date: 20170329
  Transmission Date: 20170429
  Serious: Yes (Hospitalization, Other)
  Sender: FDA-Public Use
  Company Number: CH-TEVA-753410ISR

PATIENT
  Age: 86 Year
  Sex: Male
  Weight: 79.5 kg

DRUGS (20)
  1. TORASEMIDE [Interacting]
     Active Substance: TORSEMIDE
     Dosage: 5 MILLIGRAM DAILY; 1-0-0-0
     Route: 048
     Dates: start: 201608, end: 20170214
  2. LASIX [Interacting]
     Active Substance: FUROSEMIDE
     Route: 040
     Dates: start: 20170212, end: 20170220
  3. CLOPIDOGREL [Concomitant]
     Active Substance: CLOPIDOGREL BISULFATE
     Dosage: 75 MILLIGRAM DAILY;
     Route: 065
     Dates: start: 20170127, end: 20170228
  4. CANDESARTAN [Concomitant]
     Active Substance: CANDESARTAN
     Dosage: 16 MILLIGRAM DAILY;
     Route: 065
     Dates: start: 201608
  5. ONDANSETRON [Concomitant]
     Active Substance: ONDANSETRON
     Route: 065
     Dates: start: 20170210, end: 20170214
  6. FRAGMIN [Concomitant]
     Active Substance: DALTEPARIN SODIUM
     Dosage: 5000 IU (INTERNATIONAL UNIT) DAILY; VIALS
     Route: 058
     Dates: start: 20170127
  7. GYNO TARDYFERON [Concomitant]
     Dosage: 1 DOSAGE FORMS DAILY; DELAYED-RELEASE
     Route: 065
     Dates: start: 201608
  8. HUMALOG [Concomitant]
     Active Substance: INSULIN LISPRO
     Route: 058
     Dates: start: 20170124
  9. ERYTHROCIN [Concomitant]
     Active Substance: ERYTHROMYCIN LACTOBIONATE
     Dosage: 300 MILLIGRAM DAILY;
     Route: 042
     Dates: start: 20170214, end: 20170221
  10. PRADIF T [Concomitant]
     Active Substance: TAMSULOSIN HYDROCHLORIDE
     Dosage: 400 MICROGRAM DAILY; TABLETS, OTHER
     Route: 065
     Dates: start: 20170203
  11. NOVALGIN 500 MG [Concomitant]
     Dosage: 4000 MILLIGRAM DAILY;
     Route: 065
     Dates: start: 20170127
  12. METFORMIN [Concomitant]
     Active Substance: METFORMIN HYDROCHLORIDE
     Dosage: 1000 MILLIGRAM DAILY;
     Route: 065
     Dates: start: 20170203, end: 20170214
  13. DAFALGAN [Concomitant]
     Active Substance: ACETAMINOPHEN
     Dosage: 4 GRAM DAILY;
     Route: 065
     Dates: start: 201608
  14. KEFZOL [Suspect]
     Active Substance: CEFAZOLIN SODIUM
     Indication: POSTOPERATIVE WOUND INFECTION
     Dosage: 3 DOSAGE FORMS DAILY;
     Route: 041
     Dates: start: 20170206, end: 20170221
  15. MORPHINE [Concomitant]
     Active Substance: MORPHINE
     Dosage: MORPHINE DROPS
     Route: 065
     Dates: start: 20170203, end: 20170211
  16. ASPIRIN CARDIO 100 FILM TABLETS [Concomitant]
     Active Substance: ASPIRIN
     Dosage: 100 MILLIGRAM DAILY;
     Route: 065
     Dates: start: 2010
  17. PASPERTIN 10 MG/2 ML, INJECTION SOLUTION [Concomitant]
     Dosage: 30 MILLIGRAM DAILY; VIALS
     Route: 042
     Dates: start: 20170214
  18. PANTOPRAZOL [Concomitant]
     Active Substance: PANTOPRAZOLE SODIUM
     Dosage: 40 MILLIGRAM DAILY;
     Route: 065
     Dates: start: 201608
  19. AMLODIPIN [Concomitant]
     Active Substance: AMLODIPINE BESYLATE
     Dosage: 10 MILLIGRAM DAILY;
     Route: 065
     Dates: start: 201608
  20. CLYSSIE ENEMA [Concomitant]
     Route: 065
     Dates: start: 20170210, end: 20170210

REACTIONS (2)
  - Acute kidney injury [Not Recovered/Not Resolved]
  - Drug interaction [Not Recovered/Not Resolved]

NARRATIVE: CASE EVENT DATE: 20170206
